FAERS Safety Report 12971307 (Version 1)
Quarter: 2016Q4

REPORT INFORMATION
  Report Type: Spontaneous
  Country: US (occurrence: US)
  Receive Date: 20161123
  Receipt Date: 20161123
  Transmission Date: 20170207
  Serious: No
  Sender: FDA-Public Use
  Company Number: US-JAZZ-2016-US-019715

PATIENT
  Sex: Female

DRUGS (19)
  1. PAXIL [Concomitant]
     Active Substance: PAROXETINE HYDROCHLORIDE
  2. ALKA-SELTZER                       /00002701/ [Concomitant]
     Active Substance: ASPIRIN
  3. ECHINACEA                          /01323501/ [Concomitant]
     Active Substance: ECHINACEA PURPUREA
  4. DEPLIN [Concomitant]
     Active Substance: LEVOMEFOLATE CALCIUM
  5. PROPRANOLOL [Concomitant]
     Active Substance: PROPRANOLOL\PROPRANOLOL HYDROCHLORIDE
  6. MIRAPEX [Concomitant]
     Active Substance: PRAMIPEXOLE DIHYDROCHLORIDE
  7. MELATONIN [Concomitant]
     Active Substance: MELATONIN
  8. XYREM [Suspect]
     Active Substance: SODIUM OXYBATE
     Indication: NARCOLEPSY
     Dosage: 2.25 G, BID
     Route: 048
     Dates: start: 201412, end: 201412
  9. NUVIGIL [Concomitant]
     Active Substance: ARMODAFINIL
  10. MAXALT [Concomitant]
     Active Substance: RIZATRIPTAN BENZOATE
  11. XYREM [Suspect]
     Active Substance: SODIUM OXYBATE
     Dosage: 3 G, BID
     Route: 048
     Dates: start: 201412, end: 201501
  12. XYREM [Suspect]
     Active Substance: SODIUM OXYBATE
     Dosage: 3.75 G, BID
     Route: 048
     Dates: start: 201607
  13. IBUPROFEN. [Concomitant]
     Active Substance: IBUPROFEN
  14. ABILIFY [Concomitant]
     Active Substance: ARIPIPRAZOLE
  15. NORTREL                            /00318901/ [Concomitant]
     Active Substance: LEVONORGESTREL
  16. XYREM [Suspect]
     Active Substance: SODIUM OXYBATE
     Dosage: 3.75 G, BID
     Route: 048
     Dates: start: 201501, end: 2015
  17. BYSTOLIC [Concomitant]
     Active Substance: NEBIVOLOL HYDROCHLORIDE
  18. TAMIFLU [Concomitant]
     Active Substance: OSELTAMIVIR PHOSPHATE
  19. PROVIGIL [Concomitant]
     Active Substance: MODAFINIL

REACTIONS (1)
  - Cough [Unknown]
